FAERS Safety Report 5591313-9 (Version None)
Quarter: 2008Q1

REPORT INFORMATION
  Report Type: 
  Country: None (occurrence: None)
  Receive Date: 20080110
  Receipt Date: 20080110
  Transmission Date: 20080703
  Serious: Yes (Death)
  Sender: FDA-Public Use
  Company Number: None

PATIENT
  Sex: Female
  Weight: 68.0396 kg

DRUGS (1)
  1. GADOLINIUM UNKNOWN TO ME UNKNOWN TO ME [Suspect]
     Indication: NUCLEAR MAGNETIC RESONANCE IMAGING
     Dates: start: 20070416, end: 20070416

REACTIONS (2)
  - LOSS OF CONSCIOUSNESS [None]
  - POST PROCEDURAL MYOCARDIAL INFARCTION [None]
